FAERS Safety Report 7816437-4 (Version None)
Quarter: 2011Q4

REPORT INFORMATION
  Report Type: 
  Country: None (occurrence: None)
  Receive Date: 20111017
  Receipt Date: 20111006
  Transmission Date: 20120403
  Serious: Yes (Other)
  Sender: FDA-Public Use
  Company Number: CH-JNJFOC-20111002174

PATIENT
  Age: 37 Year
  Sex: Male

DRUGS (6)
  1. TRAZODONE HYDROCHLORIDE [Concomitant]
     Route: 065
     Dates: start: 20110823
  2. TRAZODONE HYDROCHLORIDE [Concomitant]
     Route: 065
     Dates: start: 20110722
  3. RISPERDAL [Suspect]
     Indication: MAJOR DEPRESSION
     Route: 048
     Dates: start: 20110815, end: 20110905
  4. RISPERDAL [Suspect]
     Route: 048
     Dates: start: 20110906
  5. ESCITALOPRAM [Concomitant]
     Indication: MAJOR DEPRESSION
     Route: 065
  6. TRAZODONE HYDROCHLORIDE [Concomitant]
     Route: 065
     Dates: start: 20110829

REACTIONS (1)
  - ABNORMAL SLEEP-RELATED EVENT [None]
